FAERS Safety Report 5470672-1 (Version None)
Quarter: 2007Q3

REPORT INFORMATION
  Report Type: 
  Country: None (occurrence: None)
  Receive Date: 20070928
  Receipt Date: 20070918
  Transmission Date: 20080115
  Serious: Yes (Hospitalization, Other)
  Sender: FDA-Public Use
  Company Number: US-ELI_LILLY_AND_COMPANY-US200709001177

PATIENT
  Age: 70 Year
  Sex: Female

DRUGS (19)
  1. FORTEO [Suspect]
     Indication: OSTEOPOROSIS
     Dosage: UNK, UNK
     Dates: start: 20060901, end: 20061201
  2. FORTEO [Suspect]
     Dates: start: 20070816
  3. FENTANYL [Concomitant]
     Indication: BACK PAIN
  4. HYDROCODONE BITARTRATE [Concomitant]
     Indication: BACK PAIN
  5. VITAMIN D [Concomitant]
     Indication: SUPPLEMENTATION THERAPY
     Dosage: 800 MG, UNK
  6. MAGNESIUM SULFATE [Concomitant]
     Indication: SUPPLEMENTATION THERAPY
  7. CO-Q10 [Concomitant]
     Indication: SUPPLEMENTATION THERAPY
  8. CITRACAL + D [Concomitant]
     Indication: SUPPLEMENTATION THERAPY
  9. SKELAXIN [Concomitant]
     Indication: MUSCLE SPASMS
  10. ENALAPRIL MALEATE [Concomitant]
     Indication: CARDIAC DISORDER
  11. SYNTHROID [Concomitant]
     Indication: THYROID DISORDER
  12. NEXIUM [Concomitant]
     Indication: GASTROINTESTINAL DISORDER
  13. AMIODARONE HCL [Concomitant]
     Indication: CARDIAC DISORDER
  14. LIPITOR [Concomitant]
     Indication: BLOOD CHOLESTEROL
  15. LYRICA [Concomitant]
     Indication: NEURALGIA
  16. ALPRAZOLAM [Concomitant]
     Indication: SLEEP DISORDER
     Dosage: UNK, EACH EVENING
  17. WARFARIN [Concomitant]
     Indication: ANTICOAGULANT THERAPY
  18. FUROSEMIDE [Concomitant]
     Indication: SWELLING
     Dosage: UNK, AS NEEDED
  19. ACIDOPHILUS [Concomitant]
     Indication: SUPPLEMENTATION THERAPY

REACTIONS (9)
  - ARTHRALGIA [None]
  - BRADYCARDIA [None]
  - FALL [None]
  - FIBULA FRACTURE [None]
  - FOOT FRACTURE [None]
  - HYPOAESTHESIA [None]
  - INTERVERTEBRAL DISC DISORDER [None]
  - LOWER LIMB FRACTURE [None]
  - PERONEAL NERVE PALSY [None]
